FAERS Safety Report 4396384-3 (Version None)
Quarter: 2004Q3

REPORT INFORMATION
  Report Type: 
  Country: None (occurrence: None)
  Receive Date: 20040708
  Receipt Date: 20040624
  Transmission Date: 20050211
  Serious: Yes (Hospitalization)
  Sender: FDA-Public Use
  Company Number: 2004-DE-03368DE

PATIENT
  Age: 71 Year
  Sex: Male

DRUGS (1)
  1. AGGRENOX [Suspect]
     Indication: CEREBROVASCULAR ACCIDENT
     Dosage: 2 ANZ (SEE TEXT, 1-0-1) PO
     Route: 048
     Dates: start: 20040615

REACTIONS (2)
  - HYPERTENSIVE CRISIS [None]
  - PSYCHOSOMATIC DISEASE [None]
